FAERS Safety Report 21736437 (Version 1)
Quarter: 2022Q4

REPORT INFORMATION
  Report Type: Spontaneous
  Country: US (occurrence: US)
  Receive Date: 20221215
  Receipt Date: 20221215
  Transmission Date: 20230112
  Serious: Yes (Other)
  Sender: FDA-Public Use
  Company Number: US-STRIDES ARCOLAB LIMITED-2022SP001494

PATIENT
  Age: 52 Year
  Sex: Male

DRUGS (4)
  1. VALGANCICLOVIR HYDROCHLORIDE [Suspect]
     Active Substance: VALGANCICLOVIR HYDROCHLORIDE
     Indication: Post transplant lymphoproliferative disorder
     Dosage: UNK
     Route: 065
  2. GANCICLOVIR [Suspect]
     Active Substance: GANCICLOVIR
     Indication: Post transplant lymphoproliferative disorder
     Dosage: UNK
     Route: 065
  3. TACROLIMUS [Concomitant]
     Active Substance: TACROLIMUS
     Indication: Liver transplant
     Dosage: UNK,THERAPY INITIALLY WITHHELD AND RESUMED, AND LATER DISCONTINUED
     Route: 065
  4. TACROLIMUS [Concomitant]
     Active Substance: TACROLIMUS
     Dosage: UNK
     Route: 065

REACTIONS (3)
  - Neutropenia [Recovered/Resolved]
  - Leukopenia [Recovered/Resolved]
  - Off label use [Unknown]
